FAERS Safety Report 9098606 (Version 2)
Quarter: 2013Q2

REPORT INFORMATION
  Report Type: Spontaneous
  Country: US (occurrence: US)
  Receive Date: 20130213
  Receipt Date: 20130624
  Transmission Date: 20140414
  Serious: No
  Sender: FDA-Public Use
  Company Number: US-PFIZER INC-2013053421

PATIENT
  Age: 54 Year
  Sex: Male

DRUGS (2)
  1. DEPO-TESTOSTERONE [Suspect]
     Indication: BLOOD TESTOSTERONE DECREASED
     Dosage: 100 MG, WEEKLY
  2. CLONAZEPAM [Concomitant]
     Indication: ANXIETY
     Dosage: 0.5MG ,AS NEEDED THREE TIMES A DAY

REACTIONS (2)
  - Product quality issue [Recovering/Resolving]
  - Hypersensitivity [Recovering/Resolving]
